FAERS Safety Report 6092630-9 (Version None)
Quarter: 2009Q1

REPORT INFORMATION
  Report Type: 
  Country: None (occurrence: None)
  Receive Date: 20090223
  Receipt Date: 20090223
  Transmission Date: 20090719
  Serious: No
  Sender: FDA-Public Use
  Company Number: None

PATIENT
  Age: 54 Year
  Sex: Female
  Weight: 73.4827 kg

DRUGS (1)
  1. KEFLEX [Suspect]
     Indication: MASTECTOMY
     Dosage: ONE CAPSULE 4 TIMES A DAY PO
     Route: 048
     Dates: start: 20090114, end: 20090117

REACTIONS (1)
  - RASH PRURITIC [None]
